FAERS Safety Report 18402809 (Version 1)
Quarter: 2020Q4

REPORT INFORMATION
  Report Type: Spontaneous
  Country: US (occurrence: US)
  Receive Date: 20201019
  Receipt Date: 20201019
  Transmission Date: 20210114
  Serious: Yes (Death, Other)
  Sender: FDA-Public Use
  Company Number: US-GILEAD-2020-0499739

PATIENT
  Age: 65 Year
  Sex: Female
  Weight: 77 kg

DRUGS (13)
  1. CALCIUM [Concomitant]
     Active Substance: CALCIUM
  2. HEPARIN [Concomitant]
     Active Substance: HEPARIN SODIUM
  3. EPINEPHRINE. [Concomitant]
     Active Substance: EPINEPHRINE
  4. NOREPINEPHRINE. [Concomitant]
     Active Substance: NOREPINEPHRINE
  5. DEXAMETHASONE. [Concomitant]
     Active Substance: DEXAMETHASONE
  6. PANTOPRAZOLE [Concomitant]
     Active Substance: PANTOPRAZOLE
  7. ENOXAPARIN [Concomitant]
     Active Substance: ENOXAPARIN
  8. REMDESIVIR. [Suspect]
     Active Substance: REMDESIVIR
     Indication: COVID-19
     Dosage: 200 MG, ONCE
     Route: 042
     Dates: start: 20200929, end: 20200929
  9. REMDESIVIR. [Suspect]
     Active Substance: REMDESIVIR
     Indication: RESPIRATORY DISTRESS
  10. BICARBONATE [Concomitant]
     Active Substance: SODIUM BICARBONATE
  11. VASOPRESSIN. [Concomitant]
     Active Substance: VASOPRESSIN
  12. CEFEPIME [Concomitant]
     Active Substance: CEFEPIME HYDROCHLORIDE
  13. PETROLATUM. [Concomitant]
     Active Substance: PETROLATUM

REACTIONS (2)
  - Cardiopulmonary failure [Fatal]
  - COVID-19 [Fatal]

NARRATIVE: CASE EVENT DATE: 20201001
